FAERS Safety Report 20664820 (Version 3)
Quarter: 2022Q2

REPORT INFORMATION
  Report Type: Spontaneous
  Country: US (occurrence: US)
  Receive Date: 20220401
  Receipt Date: 20220601
  Transmission Date: 20220721
  Serious: No
  Sender: FDA-Public Use
  Company Number: US-PFIZER INC-202200439908

PATIENT
  Age: 59 Year

DRUGS (1)
  1. PREMARIN [Suspect]
     Active Substance: ESTROGENS, CONJUGATED
     Indication: Menopause
     Dosage: 1.25 MG, DAILY
     Route: 048
     Dates: start: 2002

REACTIONS (3)
  - Drug ineffective [Unknown]
  - Asthenia [Not Recovered/Not Resolved]
  - Hot flush [Unknown]
